FAERS Safety Report 16980512 (Version 1)
Quarter: 2019Q4

REPORT INFORMATION
  Report Type: Spontaneous
  Country: GB (occurrence: GB)
  Receive Date: 20191031
  Receipt Date: 20191031
  Transmission Date: 20200122
  Serious: Yes (Other)
  Sender: FDA-Public Use
  Company Number: GB-ASCEND THERAPEUTICS US, LLC-2076284

PATIENT
  Age: 51 Year
  Sex: Female

DRUGS (4)
  1. ESTROGEL [Suspect]
     Active Substance: ESTRADIOL
     Route: 061
     Dates: end: 20191011
  2. VAGIFEM [Concomitant]
     Active Substance: ESTRADIOL
  3. UTROGESTAN [Suspect]
     Active Substance: PROGESTERONE
     Route: 048
     Dates: start: 20190920, end: 20191011
  4. ESTROGEL [Suspect]
     Active Substance: ESTRADIOL
     Indication: HORMONE REPLACEMENT THERAPY
     Route: 061
     Dates: start: 20190920

REACTIONS (4)
  - Vertigo [Not Recovered/Not Resolved]
  - Eye pain [Not Recovered/Not Resolved]
  - Tension headache [Not Recovered/Not Resolved]
  - Balance disorder [Not Recovered/Not Resolved]
